FAERS Safety Report 6673166-0 (Version None)
Quarter: 2010Q2

REPORT INFORMATION
  Report Type: 
  Country: None (occurrence: None)
  Receive Date: 20100408
  Receipt Date: 20100330
  Transmission Date: 20101027
  Serious: Yes (Hospitalization, Other)
  Sender: FDA-Public Use
  Company Number: US-JNJFOC-20090906576

PATIENT
  Sex: Male
  Weight: 68.04 kg

DRUGS (2)
  1. LEVAQUIN [Suspect]
     Indication: BRONCHITIS
     Route: 048
  2. LEVAQUIN [Suspect]
     Indication: PNEUMONITIS
     Route: 048

REACTIONS (3)
  - HYPOXIA [None]
  - RHEUMATOID ARTHRITIS [None]
  - TENDON RUPTURE [None]
